FAERS Safety Report 8607051-1 (Version None)
Quarter: 2012Q3

REPORT INFORMATION
  Report Type: 
  Country: None (occurrence: None)
  Receive Date: 20120821
  Receipt Date: 20120810
  Transmission Date: 20120928
  Serious: Yes (Hospitalization)
  Sender: FDA-Public Use
  Company Number: FR-AMGEN-FRASP2012051982

PATIENT
  Age: 10 Year
  Sex: Female
  Weight: 27.9 kg

DRUGS (1)
  1. ENBREL [Suspect]
     Indication: JUVENILE ARTHRITIS
     Dosage: 20 MG EVERY 15 DAYS
     Route: 058
     Dates: start: 20091201

REACTIONS (1)
  - VIITH NERVE PARALYSIS [None]
